FAERS Safety Report 6752241-6 (Version None)
Quarter: 2010Q2

REPORT INFORMATION
  Report Type: 
  Country: None (occurrence: None)
  Receive Date: 20100602
  Receipt Date: 20100525
  Transmission Date: 20101027
  Serious: Yes (Other)
  Sender: FDA-Public Use
  Company Number: US-JNJFOC-20100510258

PATIENT
  Sex: Female
  Weight: 79.83 kg

DRUGS (9)
  1. KETOCONAZOLE [Suspect]
     Indication: SEBORRHOEA
     Route: 061
  2. NIZORAL [Suspect]
     Indication: DRUG USE FOR UNKNOWN INDICATION
  3. LASIX [Concomitant]
     Indication: CARDIAC DISORDER
     Route: 048
  4. PROPRANOLOL [Concomitant]
     Indication: CARDIAC DISORDER
     Route: 048
  5. UNKNOWN MEDICATION [Concomitant]
     Indication: CARDIAC DISORDER
     Route: 048
  6. GEMFIBROZIL [Concomitant]
     Indication: DRUG USE FOR UNKNOWN INDICATION
     Route: 048
  7. ARIMIDEX [Concomitant]
     Indication: NEOPLASM PROPHYLAXIS
     Route: 048
  8. ZYRTEC [Concomitant]
     Indication: SNEEZING
     Route: 048
  9. MICRO-K [Concomitant]
     Indication: BLOOD POTASSIUM
     Route: 048

REACTIONS (4)
  - ADVERSE EVENT [None]
  - ALOPECIA [None]
  - DIABETES MELLITUS [None]
  - SECRETION DISCHARGE [None]
